FAERS Safety Report 5261459-3 (Version None)
Quarter: 2007Q1

REPORT INFORMATION
  Report Type: 
  Country: None (occurrence: None)
  Receive Date: 20070307
  Receipt Date: 20070220
  Transmission Date: 20070707
  Serious: Yes (Hospitalization)
  Sender: FDA-Public Use
  Company Number: 070220-0000208

PATIENT
  Age: 76 Year
  Sex: Male
  Weight: 90 kg

DRUGS (4)
  1. INDOMETHACIN [Suspect]
     Indication: GOUT
     Dosage: 50 MG; QD
     Dates: start: 20010101, end: 20070128
  2. AMLODIPINE [Concomitant]
  3. ATORVASTATIN CALCIUM [Concomitant]
  4. RAMIPRIL [Concomitant]

REACTIONS (1)
  - DUODENAL ULCER PERFORATION [None]
